FAERS Safety Report 22888328 (Version 2)
Quarter: 2023Q4

REPORT INFORMATION
  Report Type: Report from Study
  Country: DE (occurrence: DE)
  Receive Date: 20230831
  Receipt Date: 20231017
  Transmission Date: 20240110
  Serious: Yes (Other)
  Sender: FDA-Public Use
  Company Number: DE-ALCEDIS-CEMIAE780

PATIENT
  Age: 91 Year
  Sex: Male
  Weight: 94 kg

DRUGS (7)
  1. PANTOPRAZOLE [Suspect]
     Active Substance: PANTOPRAZOLE
     Dosage: UNK
     Route: 065
     Dates: start: 2022
  2. IBUPROFEN [Suspect]
     Active Substance: IBUPROFEN
     Dosage: UNK
     Route: 065
     Dates: start: 2022
  3. CEMIPLIMAB [Suspect]
     Active Substance: CEMIPLIMAB
     Indication: Squamous cell carcinoma of skin
     Dosage: 350 MILLIGRAM, Q3WEEKS
     Route: 042
     Dates: start: 20221014
  4. POLIDOCANOL\UREA [Concomitant]
     Active Substance: POLIDOCANOL\UREA
     Dosage: UNK
     Route: 065
     Dates: start: 20230519
  5. CLEMASTINE FUMARATE [Concomitant]
     Active Substance: CLEMASTINE FUMARATE
     Dosage: UNK
     Route: 065
     Dates: start: 202305
  6. ZOLPIDEM TARTRATE [Concomitant]
     Active Substance: ZOLPIDEM TARTRATE
     Dosage: UNK
     Route: 065
     Dates: start: 2022
  7. UREA [Concomitant]
     Active Substance: UREA
     Dosage: UNK
     Route: 065
     Dates: start: 202305

REACTIONS (1)
  - Lymphadenectomy [Recovered/Resolved]

NARRATIVE: CASE EVENT DATE: 20230728
